FAERS Safety Report 5921359-X (Version None)
Quarter: 2008Q4

REPORT INFORMATION
  Report Type: 
  Country: None (occurrence: None)
  Receive Date: 20081014
  Receipt Date: 20081001
  Transmission Date: 20090506
  Serious: Yes (Other)
  Sender: FDA-Public Use
  Company Number: STI-2008-03088

PATIENT
  Sex: Female

DRUGS (1)
  1. CLINDOXYL [Suspect]
     Dosage: TOPICAL
     Route: 061
     Dates: start: 20080926

REACTIONS (5)
  - DRY SKIN [None]
  - HYPERSENSITIVITY [None]
  - SKIN DISORDER [None]
  - SKIN IRRITATION [None]
  - SWELLING [None]
